FAERS Safety Report 4590974-0 (Version None)
Quarter: 2005Q1

REPORT INFORMATION
  Report Type: 
  Country: None (occurrence: None)
  Receive Date: 20050225
  Receipt Date: 20041112
  Transmission Date: 20050727
  Serious: Yes (Hospitalization)
  Sender: FDA-Public Use
  Company Number: 200413494JP

PATIENT
  Age: 66 Year
  Sex: Female

DRUGS (7)
  1. ARAVA [Suspect]
     Indication: RHEUMATOID ARTHRITIS
     Route: 048
     Dates: start: 20040624, end: 20040710
  2. RANTUDIL [Concomitant]
     Indication: RHEUMATOID ARTHRITIS
     Route: 048
  3. SELBEX [Concomitant]
     Indication: PROPHYLAXIS
     Route: 048
  4. TAGAMET [Concomitant]
     Indication: PROPHYLAXIS
     Route: 048
  5. ALFAROL [Concomitant]
     Indication: OSTEOPOROSIS
     Route: 048
  6. ALFAROL [Concomitant]
     Indication: RHEUMATOID ARTHRITIS
     Route: 048
  7. PREDNISOLONE [Concomitant]
     Indication: RHEUMATOID ARTHRITIS
     Route: 048

REACTIONS (3)
  - CEREBRAL INFARCTION [None]
  - FATIGUE [None]
  - SPEECH DISORDER [None]
